FAERS Safety Report 15982902 (Version 1)
Quarter: 2019Q1

REPORT INFORMATION
  Report Type: Spontaneous
  Country: FR (occurrence: FR)
  Receive Date: 20190219
  Receipt Date: 20190219
  Transmission Date: 20190418
  Serious: Yes (Other)
  Sender: FDA-Public Use
  Company Number: FR-PFIZER INC-2019064068

PATIENT
  Age: 55 Year
  Sex: Male

DRUGS (3)
  1. GENVOYA [Concomitant]
     Active Substance: COBICISTAT\ELVITEGRAVIR\EMTRICITABINE\TENOFOVIR ALAFENAMIDE FUMARATE
     Dosage: 1 DF, QD
     Route: 065
  2. SILDENAFIL CITRATE. [Suspect]
     Active Substance: SILDENAFIL CITRATE
     Dosage: 50 MG, QW2
     Route: 065
     Dates: start: 2018
  3. TADALAFIL. [Suspect]
     Active Substance: TADALAFIL
     Dosage: 0.5 DF, QOD
     Route: 065
     Dates: start: 2018

REACTIONS (8)
  - Testicular pain [Unknown]
  - Pelvic pain [Unknown]
  - Back pain [Unknown]
  - Product use issue [Unknown]
  - Back pain [Recovered/Resolved]
  - Inappropriate schedule of product administration [Unknown]
  - Back pain [Recovered/Resolved]
  - Chlamydial infection [Unknown]

NARRATIVE: CASE EVENT DATE: 2018
